FAERS Safety Report 8545410-6 (Version None)
Quarter: 2012Q3

REPORT INFORMATION
  Report Type: 
  Country: None (occurrence: None)
  Receive Date: 20120727
  Receipt Date: 20111031
  Transmission Date: 20120928
  Serious: No
  Sender: FDA-Public Use
  Company Number: US-ASTRAZENECA-2011SE66558

PATIENT

DRUGS (1)
  1. SEROQUEL XR [Suspect]
     Dosage: HIGHER DOSES, I.E.: 600 MG
     Route: 048

REACTIONS (3)
  - BLOOD CREATINE PHOSPHOKINASE INCREASED [None]
  - FALL [None]
  - CONTUSION [None]
